FAERS Safety Report 6700406-1 (Version None)
Quarter: 2010Q2

REPORT INFORMATION
  Report Type: 
  Country: None (occurrence: None)
  Receive Date: 20100426
  Receipt Date: 20100414
  Transmission Date: 20101027
  Serious: Yes (Other)
  Sender: FDA-Public Use
  Company Number: 7001677

PATIENT
  Age: 32 Year
  Sex: Female

DRUGS (2)
  1. REBIF [Suspect]
     Indication: MULTIPLE SCLEROSIS
     Dosage: 44 MCG, 3 IN 1 WK
     Dates: start: 20070108
  2. ALENIA (FORASEQ /01558501/) [Concomitant]

REACTIONS (5)
  - ASTHMA [None]
  - DEPRESSION [None]
  - DEVICE DIFFICULT TO USE [None]
  - INJECTION SITE HAEMORRHAGE [None]
  - SUICIDAL IDEATION [None]
